FAERS Safety Report 8062162-7 (Version None)
Quarter: 2012Q1

REPORT INFORMATION
  Report Type: 
  Country: None (occurrence: None)
  Receive Date: 20120120
  Receipt Date: 20120120
  Transmission Date: 20120608
  Serious: Yes (Hospitalization, Disabling)
  Sender: FDA-Public Use
  Company Number: None

PATIENT
  Sex: Male
  Weight: 99.7913 kg

DRUGS (1)
  1. SIMVASTATIN [Suspect]

REACTIONS (11)
  - LOSS OF CONTROL OF LEGS [None]
  - FEELING ABNORMAL [None]
  - INTERVERTEBRAL DISC PROTRUSION [None]
  - ARTHRITIS [None]
  - GROIN PAIN [None]
  - LOWER LIMB FRACTURE [None]
  - BURNING SENSATION [None]
  - BURSITIS [None]
  - ARTHROPATHY [None]
  - MUSCLE SPASMS [None]
  - MENISCUS LESION [None]
